FAERS Safety Report 15456717 (Version 1)
Quarter: 2018Q4

REPORT INFORMATION
  Report Type: Spontaneous
  Country: JP (occurrence: JP)
  Receive Date: 20181002
  Receipt Date: 20181002
  Transmission Date: 20190204
  Serious: Yes (Death)
  Sender: FDA-Public Use
  Company Number: JP-ELI_LILLY_AND_COMPANY-JP201809002597

PATIENT
  Age: 86 Year
  Sex: Male
  Weight: 47 kg

DRUGS (5)
  1. DULOXETINE HYDROCHLORIDE. [Suspect]
     Active Substance: DULOXETINE HYDROCHLORIDE
     Indication: SPINAL OSTEOARTHRITIS
     Dosage: 20 MG, DAILY
     Route: 048
     Dates: start: 20180607, end: 20180624
  2. AMISALIN                           /00039602/ [Concomitant]
     Indication: AORTIC VALVE INCOMPETENCE
     Dosage: 250 MG, BID
     Route: 048
     Dates: start: 20170608, end: 20180627
  3. AMISALIN                           /00039602/ [Concomitant]
     Indication: EXTRASYSTOLES
  4. FLIVAS [Suspect]
     Active Substance: NAFTOPIDIL
     Indication: BENIGN PROSTATIC HYPERPLASIA
     Dosage: 75 MG, DAILY
     Route: 048
     Dates: start: 20180205, end: 20180627
  5. DULOXETINE HYDROCHLORIDE. [Suspect]
     Active Substance: DULOXETINE HYDROCHLORIDE
     Dosage: 40 MG, DAILY
     Route: 048
     Dates: start: 20180625, end: 20180627

REACTIONS (2)
  - Fall [Fatal]
  - Spinal cord injury cervical [Fatal]

NARRATIVE: CASE EVENT DATE: 20180628
